FAERS Safety Report 23675262 (Version 1)
Quarter: 2024Q1

REPORT INFORMATION
  Report Type: Report from Study
  Country: US (occurrence: US)
  Receive Date: 20240327
  Receipt Date: 20240327
  Transmission Date: 20240409
  Serious: Yes (Other)
  Sender: FDA-Public Use
  Company Number: US-ABBVIE-5690829

PATIENT
  Age: 45 Year
  Sex: Female

DRUGS (1)
  1. HUMIRA [Suspect]
     Active Substance: ADALIMUMAB
     Indication: Crohn^s disease
     Route: 058
     Dates: start: 20231020

REACTIONS (7)
  - Intestinal haemorrhage [Not Recovered/Not Resolved]
  - Rectal abscess [Unknown]
  - Drug ineffective [Unknown]
  - Feeding disorder [Unknown]
  - Drug level decreased [Unknown]
  - Gastrointestinal inflammation [Not Recovered/Not Resolved]
  - Fistula [Unknown]

NARRATIVE: CASE EVENT DATE: 20240131
